FAERS Safety Report 18432099 (Version 2)
Quarter: 2020Q4

REPORT INFORMATION
  Report Type: Spontaneous
  Country: GR (occurrence: GR)
  Receive Date: 20201027
  Receipt Date: 20201117
  Transmission Date: 20210114
  Serious: Yes (Life-Threatening, Hospitalization)
  Sender: FDA-Public Use
  Company Number: GR-MYLANLABS-2020M1089740

PATIENT
  Age: 33 Year
  Sex: Female

DRUGS (6)
  1. CEFTRIAXONE. [Concomitant]
     Active Substance: CEFTRIAXONE
     Indication: ENDOCARDITIS
     Dosage: UNK
     Route: 042
  2. CLOXACILLIN [Suspect]
     Active Substance: CLOXACILLIN
     Indication: STAPHYLOCOCCAL INFECTION
     Dosage: 12 GRAM, QD
  3. COLCHICINE. [Concomitant]
     Active Substance: COLCHICINE
     Indication: POSTPERICARDIOTOMY SYNDROME
     Dosage: UNK
  4. BRUFEN [Suspect]
     Active Substance: IBUPROFEN
     Indication: POSTPERICARDIOTOMY SYNDROME
     Dosage: UNK
  5. LINEZOLID. [Suspect]
     Active Substance: LINEZOLID
     Indication: STAPHYLOCOCCAL INFECTION
     Dosage: 2.4 MILLIGRAM, QD
  6. GENTAMYCIN                         /00047101/ [Concomitant]
     Active Substance: GENTAMICIN
     Indication: ENDOCARDITIS
     Dosage: UNK
     Route: 042

REACTIONS (2)
  - Drug ineffective [Recovering/Resolving]
  - Treatment failure [Recovering/Resolving]
